FAERS Safety Report 5802143-4 (Version None)
Quarter: 2008Q3

REPORT INFORMATION
  Report Type: 
  Country: None (occurrence: None)
  Receive Date: 20080707
  Receipt Date: 20080623
  Transmission Date: 20090109
  Serious: Yes (Congenital Anomaly)
  Sender: FDA-Public Use
  Company Number: FR-ROCHE-568561

PATIENT
  Sex: Male
  Weight: 2.6 kg

DRUGS (8)
  1. COPEGUS [Suspect]
     Route: 064
     Dates: end: 20070305
  2. VIRAFERONPEG [Suspect]
     Indication: HEPATITIS C
     Dosage: FORM INJECTABLE SOLUTION
  3. LAMICTAL [Suspect]
     Indication: EPILEPSY
  4. DEROXAT [Suspect]
     Indication: DRUG USE FOR UNKNOWN INDICATION
  5. DEPAKENE [Suspect]
     Indication: EPILEPSY
     Dates: start: 19970101
  6. LEVOTHYROX [Concomitant]
     Indication: HYPOTHYROIDISM
  7. DOLIPRANE [Concomitant]
  8. CYSTINE-B6 [Concomitant]

REACTIONS (1)
  - SKULL MALFORMATION [None]
